FAERS Safety Report 6892478-9 (Version None)
Quarter: 2010Q3

REPORT INFORMATION
  Report Type: 
  Country: None (occurrence: None)
  Receive Date: 20100731
  Receipt Date: 20080613
  Transmission Date: 20110219
  Serious: No
  Sender: FDA-Public Use
  Company Number: US-PFIZER INC-2008023307

PATIENT
  Age: 75 Year
  Sex: Female
  Weight: 78.181 kg

DRUGS (3)
  1. NORVASC [Suspect]
     Indication: BLOOD PRESSURE
     Route: 048
     Dates: start: 20080301, end: 20080301
  2. SYNTHROID [Concomitant]
  3. PREMARIN [Concomitant]

REACTIONS (7)
  - BURNING SENSATION [None]
  - CHEST PAIN [None]
  - COUGH [None]
  - DRUG HYPERSENSITIVITY [None]
  - EPISTAXIS [None]
  - GAIT DISTURBANCE [None]
  - POLLAKIURIA [None]
